FAERS Safety Report 21554401 (Version 1)
Quarter: 2022Q4

REPORT INFORMATION
  Report Type: Report from Study
  Country: US (occurrence: US)
  Receive Date: 20221104
  Receipt Date: 20221104
  Transmission Date: 20230112
  Serious: No
  Sender: FDA-Public Use
  Company Number: US-ABBVIE-4135469

PATIENT
  Sex: Female

DRUGS (5)
  1. HUMIRA [Suspect]
     Active Substance: ADALIMUMAB
     Indication: Psoriasis
     Dosage: 80 MG, DAY 1,8,22
     Route: 058
  2. HUMIRA [Suspect]
     Active Substance: ADALIMUMAB
     Dosage: 40 MG, DAY 1,8,22
     Route: 058
  3. DAYSEE TAB 0.15-0.0MG [Concomitant]
     Indication: Product used for unknown indication
     Dosage: 0.15-0.0MG
  4. MECLIZINE HC TAB 25MG [Concomitant]
     Indication: Product used for unknown indication
     Dosage: 25MG
  5. SERTRALINE H TAB 50MG [Concomitant]
     Indication: Product used for unknown indication
     Dosage: 50MG

REACTIONS (1)
  - Urticaria [Recovered/Resolved]
